FAERS Safety Report 6085606-9 (Version None)
Quarter: 2009Q1

REPORT INFORMATION
  Report Type: 
  Country: None (occurrence: None)
  Receive Date: 20090220
  Receipt Date: 20090217
  Transmission Date: 20090719
  Serious: Yes (Hospitalization)
  Sender: FDA-Public Use
  Company Number: US-ASTRAZENECA-2008UW22597

PATIENT
  Age: 30 Year
  Sex: Male
  Weight: 97.5 kg

DRUGS (5)
  1. SEROQUEL [Suspect]
     Indication: SCHIZOPHRENIA
     Dosage: 100 TO 300 MG
     Route: 048
     Dates: start: 20050608, end: 20061011
  2. SEROQUEL [Suspect]
     Indication: BIPOLAR DISORDER
     Dosage: 100 TO 300 MG
     Route: 048
     Dates: start: 20050608, end: 20061011
  3. ABILIFY [Concomitant]
     Dates: start: 20081101
  4. GEODON [Concomitant]
     Dates: start: 20061201
  5. RISPERDAL [Concomitant]
     Dates: start: 20060202

REACTIONS (3)
  - BACK PAIN [None]
  - DIABETES MELLITUS [None]
  - HEPATITIS C [None]
